FAERS Safety Report 13006837 (Version 1)
Quarter: 2016Q4

REPORT INFORMATION
  Report Type: Spontaneous
  Country: US (occurrence: US)
  Receive Date: 20161207
  Receipt Date: 20161207
  Transmission Date: 20170207
  Serious: No
  Sender: FDA-Public Use
  Company Number: US-ASTRAZENECA-2016SF24700

PATIENT
  Sex: Male
  Weight: 102.1 kg

DRUGS (2)
  1. NUMBING CREME [Concomitant]
     Indication: INJECTION SITE PAIN
  2. BYDUREON [Suspect]
     Active Substance: EXENATIDE
     Route: 058
     Dates: start: 201606

REACTIONS (3)
  - Drug administered to patient of inappropriate age [Unknown]
  - Injection site pain [Unknown]
  - Off label use [Unknown]
